FAERS Safety Report 9522488 (Version 1)
Quarter: 2013Q3

REPORT INFORMATION
  Report Type: Spontaneous
  Country: CA (occurrence: None)
  Receive Date: 20130911
  Receipt Date: 20130911
  Transmission Date: 20140515
  Serious: No
  Sender: FDA-Public Use
  Company Number: AECAN201200462

PATIENT
  Age: 25 Year
  Sex: Female
  Weight: 12 kg

DRUGS (1)
  1. GAMUNEX (IMMUNE GLOBULIN IV (HUMAN), CAPRYLATE/CHROMATOGRAPHY PURIFIED) (10 PCT) [Suspect]
     Indication: LYMPHOPROLIFERATIVE DISORDER
     Route: 042
     Dates: start: 20120927, end: 20120927

REACTIONS (3)
  - Drug administration error [None]
  - No adverse event [None]
  - Wrong technique in drug usage process [None]
